FAERS Safety Report 4982552-6 (Version None)
Quarter: 2006Q2

REPORT INFORMATION
  Report Type: 
  Country: None (occurrence: None)
  Receive Date: 20060421
  Receipt Date: 20060412
  Transmission Date: 20061013
  Serious: Yes (Other)
  Sender: FDA-Public Use
  Company Number: 2006-03-2161

PATIENT
  Age: 57 Year
  Sex: Female
  Weight: 63.5036 kg

DRUGS (2)
  1. NASONEX [Suspect]
     Indication: NASAL CONGESTION
     Dosage: 1 SPRAY QD NASAL SPRAY
     Route: 045
     Dates: start: 20060225, end: 20060324
  2. ALLEGRA D 24 HOUR [Concomitant]

REACTIONS (4)
  - ANOSMIA [None]
  - HYPOGEUSIA [None]
  - REFUSAL OF TREATMENT BY PATIENT [None]
  - SINUSITIS [None]
